FAERS Safety Report 11263506 (Version 2)
Quarter: 2015Q3

REPORT INFORMATION
  Report Type: Spontaneous
  Country: HR (occurrence: HR)
  Receive Date: 20150713
  Receipt Date: 20150824
  Transmission Date: 20151125
  Serious: Yes (Death, Other)
  Sender: FDA-Public Use
  Company Number: HR-ABBVIE-15K-216-1424266-00

PATIENT
  Sex: Male
  Weight: 73 kg

DRUGS (5)
  1. HUMIRA [Suspect]
     Active Substance: ADALIMUMAB
     Dosage: TWO WEEKS AFTER INDUCTION DOSE
     Route: 065
  2. MEDROL [Concomitant]
     Active Substance: METHYLPREDNISOLONE
     Indication: PRODUCT USED FOR UNKNOWN INDICATION
     Dosage: 12 MG TBL
     Route: 048
     Dates: start: 20150305
  3. IMURAN [Concomitant]
     Active Substance: AZATHIOPRINE
     Indication: PRODUCT USED FOR UNKNOWN INDICATION
     Dosage: 75 MG TBL
     Route: 048
     Dates: start: 20150324
  4. HUMIRA [Suspect]
     Active Substance: ADALIMUMAB
     Indication: COLITIS ULCERATIVE
     Dosage: INDUCTION DOSE
     Route: 065
  5. PENTASA [Concomitant]
     Active Substance: MESALAMINE
     Indication: PRODUCT USED FOR UNKNOWN INDICATION
     Dosage: 3X3 TBL
     Route: 048
     Dates: start: 20150223

REACTIONS (4)
  - Agranulocytosis [Fatal]
  - Disseminated intravascular coagulation [Fatal]
  - Cerebral haemorrhage [Fatal]
  - Sepsis [Fatal]

NARRATIVE: CASE EVENT DATE: 2015
